FAERS Safety Report 4863899-0 (Version None)
Quarter: 2005Q4

REPORT INFORMATION
  Report Type: 
  Country: None (occurrence: None)
  Receive Date: 20051222
  Receipt Date: 20040816
  Transmission Date: 20060501
  Serious: Yes (Other)
  Sender: FDA-Public Use
  Company Number: CA-BRISTOL-MYERS SQUIBB COMPANY-12678967

PATIENT
  Age: 78 Year
  Sex: Male
  Weight: 93 kg

DRUGS (9)
  1. TEQUIN [Suspect]
     Indication: PNEUMONIA
     Dosage: DAY 2 TO 4
     Route: 048
  2. TEQUIN [Suspect]
     Indication: PNEUMONIA
     Route: 042
  3. METFORMIN HCL [Concomitant]
     Dosage: CHNAGED TO TWICE DAILY ON DAY 1 TO DAY 3 OF HOSPITALIZATION.
  4. AAS [Concomitant]
  5. IRBESARTAN [Concomitant]
  6. ATORVASTATIN [Concomitant]
  7. LEVOTHYROXINE SODIUM [Concomitant]
  8. ALLOPURINOL [Concomitant]
  9. OMEPRAZOLE [Concomitant]

REACTIONS (1)
  - HYPERGLYCAEMIA [None]
